FAERS Safety Report 22066169 (Version 1)
Quarter: 2023Q1

REPORT INFORMATION
  Report Type: Report from Study
  Country: CA (occurrence: CA)
  Receive Date: 20230306
  Receipt Date: 20230306
  Transmission Date: 20230418
  Serious: Yes (Hospitalization)
  Sender: FDA-Public Use
  Company Number: CA-TAIHO-2023-000450

PATIENT
  Age: 79 Year
  Sex: Male

DRUGS (1)
  1. LONSURF [Suspect]
     Active Substance: TIPIRACIL HYDROCHLORIDE\TRIFLURIDINE
     Indication: Colorectal cancer metastatic
     Dosage: DOSE AND FREQUENCY UNKNOWN. CYCLE 1
     Route: 048
     Dates: start: 20230104

REACTIONS (6)
  - Epigastric discomfort [Unknown]
  - Abdominal pain upper [Unknown]
  - Feeding disorder [Unknown]
  - Nausea [Unknown]
  - Flatulence [Unknown]
  - Decreased appetite [Unknown]
